FAERS Safety Report 8252045-1 (Version None)
Quarter: 2012Q2

REPORT INFORMATION
  Report Type: 
  Country: None (occurrence: None)
  Receive Date: 20120402
  Receipt Date: 20110304
  Transmission Date: 20120825
  Serious: No
  Sender: FDA-Public Use
  Company Number: US-ABBOTT-11P-163-0804253-00

PATIENT
  Sex: Male

DRUGS (2)
  1. TESTOSTERONE [Suspect]
     Indication: BLOOD TESTOSTERONE DECREASED
     Dosage: DAILY DOSE:  UNKNOWN
     Route: 062
     Dates: start: 20101201, end: 20110201
  2. TESTOSTERONE [Suspect]
     Dosage: DAILY DOSE:  UNKNOWN, EVERY OTHER DAY OR TWO DAYS PER WEEK
     Route: 062
     Dates: start: 20110201, end: 20110301

REACTIONS (3)
  - ERECTION INCREASED [None]
  - POLLAKIURIA [None]
  - TESTICULAR ATROPHY [None]
